FAERS Safety Report 20919600 (Version 2)
Quarter: 2022Q2

REPORT INFORMATION
  Report Type: Spontaneous
  Country: US (occurrence: US)
  Receive Date: 20220606
  Receipt Date: 20220607
  Transmission Date: 20220721
  Serious: No
  Sender: FDA-Public Use
  Company Number: US-PFIZER INC-202200793525

PATIENT
  Age: 53 Year
  Sex: Female
  Weight: 79.38 kg

DRUGS (2)
  1. CYTOMEL [Suspect]
     Active Substance: LIOTHYRONINE SODIUM
     Indication: Hypothyroidism
     Dosage: 25 UG, 1X/DAY (25MG ONCE IN THE MORNING WITH THE SYNTHROID)
  2. SYNTHROID [Suspect]
     Active Substance: LEVOTHYROXINE SODIUM
     Dosage: UNK

REACTIONS (3)
  - Alopecia [Unknown]
  - Anger [Unknown]
  - Product dose omission issue [Unknown]
